FAERS Safety Report 25584773 (Version 4)
Quarter: 2025Q3

REPORT INFORMATION
  Report Type: Report from Study
  Country: US (occurrence: US)
  Receive Date: 20250721
  Receipt Date: 20250923
  Transmission Date: 20251020
  Serious: Yes (Hospitalization)
  Sender: JAZZ
  Company Number: US-JAZZ PHARMACEUTICALS-2025-US-015420

PATIENT
  Sex: Female

DRUGS (7)
  1. XYWAV [Suspect]
     Active Substance: CALCIUM OXYBATE\MAGNESIUM OXYBATE\POTASSIUM OXYBATE\SODIUM OXYBATE
     Indication: Hypersomnia
     Dosage: 3 GRAM, BID
  2. XYWAV [Suspect]
     Active Substance: CALCIUM OXYBATE\MAGNESIUM OXYBATE\POTASSIUM OXYBATE\SODIUM OXYBATE
  3. LAMICTAL [Suspect]
     Active Substance: LAMOTRIGINE
     Indication: Product used for unknown indication
  4. LATUDA [Suspect]
     Active Substance: LURASIDONE HYDROCHLORIDE
     Indication: Product used for unknown indication
  5. PRISTIQ EXTENDED-RELEASE [Concomitant]
     Active Substance: DESVENLAFAXINE SUCCINATE
  6. PROPRANOLOL [Concomitant]
     Active Substance: PROPRANOLOL HYDROCHLORIDE
  7. POTASSIUM [Concomitant]
     Active Substance: POTASSIUM
     Indication: Product used for unknown indication

REACTIONS (15)
  - Heat exhaustion [Unknown]
  - Heat exhaustion [Unknown]
  - Lymphadenopathy [Unknown]
  - Tympanic membrane perforation [Unknown]
  - Illness [Unknown]
  - Dehydration [Unknown]
  - Enuresis [Unknown]
  - Vomiting [Unknown]
  - Fatigue [Unknown]
  - Hyperhidrosis [Unknown]
  - Anxiety [Unknown]
  - Night sweats [Unknown]
  - Product dose omission issue [Unknown]
  - Product administration interrupted [Unknown]
  - Intentional dose omission [Unknown]
